FAERS Safety Report 23182260 (Version 1)
Quarter: 2023Q4

REPORT INFORMATION
  Report Type: Report from Study
  Country: JP (occurrence: JP)
  Receive Date: 20231114
  Receipt Date: 20231114
  Transmission Date: 20240110
  Serious: Yes (Death, Disabling)
  Sender: FDA-Public Use
  Company Number: JP-TEVA-2023-JP-2944325

PATIENT
  Age: 18 Month
  Sex: Male

DRUGS (10)
  1. CARBOPLATIN [Suspect]
     Active Substance: CARBOPLATIN
     Indication: Atypical teratoid/rhabdoid tumour of CNS
     Dosage: PART OF ICE REGIMEN
     Route: 065
  2. IFOSFAMIDE [Suspect]
     Active Substance: IFOSFAMIDE
     Indication: Atypical teratoid/rhabdoid tumour of CNS
     Dosage: PART OF ICE REGIMEN
     Route: 065
  3. ETOPOSIDE [Suspect]
     Active Substance: ETOPOSIDE
     Indication: Atypical teratoid/rhabdoid tumour of CNS
     Dosage: PART OF ICE REGIMEN
     Route: 065
  4. TOPOTECAN [Suspect]
     Active Substance: TOPOTECAN HYDROCHLORIDE
     Indication: Atypical teratoid/rhabdoid tumour of CNS
     Dosage: 4 MG/M2 DAILY; ON DAYS -6 TO -2
     Route: 065
  5. TOPOTECAN [Suspect]
     Active Substance: TOPOTECAN HYDROCHLORIDE
     Dosage: PART OF MAINTENANCE THERAPY
     Route: 037
  6. MELPHALAN [Suspect]
     Active Substance: MELPHALAN
     Indication: Atypical teratoid/rhabdoid tumour of CNS
     Dosage: 70 MG/M2 DAILY; ON DAYS -3 TO -2
     Route: 065
  7. MELPHALAN [Suspect]
     Active Substance: MELPHALAN
     Dosage: 140 MG/M2 DAILY; ON DAY -2
     Route: 065
  8. CYCLOPHOSPHAMIDE [Suspect]
     Active Substance: CYCLOPHOSPHAMIDE
     Indication: Atypical teratoid/rhabdoid tumour of CNS
     Dosage: DOSE: 1 G/M 2 FROM DAYS -6 TO -4
     Route: 065
  9. CISPLATIN [Suspect]
     Active Substance: CISPLATIN
     Indication: Atypical teratoid/rhabdoid tumour of CNS
     Route: 065
  10. BUSULFAN [Suspect]
     Active Substance: BUSULFAN
     Indication: Atypical teratoid/rhabdoid tumour of CNS
     Dosage: 4.8 MG/KG DAILY; ON DAYS -6 TO -3
     Route: 065

REACTIONS (2)
  - Drug ineffective [Fatal]
  - Deafness neurosensory [Unknown]
